FAERS Safety Report 9027140 (Version 1)
Quarter: 2013Q1

REPORT INFORMATION
  Report Type: Spontaneous
  Country: US (occurrence: US)
  Receive Date: 20130123
  Receipt Date: 20130123
  Transmission Date: 20140127
  Serious: Yes (Hospitalization)
  Sender: FDA-Public Use
  Company Number: US-BRISTOL-MYERS SQUIBB COMPANY-17293762

PATIENT
  Age: 80 Year
  Sex: Female

DRUGS (1)
  1. COUMADIN [Suspect]
     Indication: THROMBOSIS
     Dates: start: 2012

REACTIONS (4)
  - Rectal haemorrhage [Unknown]
  - Haematemesis [Unknown]
  - Gingival bleeding [Unknown]
  - Pain in extremity [Unknown]
